FAERS Safety Report 4277139-7 (Version None)
Quarter: 2004Q1

REPORT INFORMATION
  Report Type: 
  Country: None (occurrence: None)
  Receive Date: 20040120
  Receipt Date: 20040107
  Transmission Date: 20041129
  Serious: Yes (Death, Life-Threatening, Hospitalization)
  Sender: FDA-Public Use
  Company Number: A-CH2003-03797

PATIENT
  Age: 75 Year
  Sex: Female

DRUGS (9)
  1. TRACLEER [Suspect]
     Indication: PULMONARY HYPERTENSION
     Dosage: 62.5 MG, BID, ORAL
     Route: 048
     Dates: start: 20030429, end: 20030512
  2. TRACLEER [Suspect]
     Indication: PULMONARY HYPERTENSION
     Dosage: 62.5 MG, BID, ORAL
     Route: 048
     Dates: start: 20030518, end: 20030525
  3. MARCUMAR [Suspect]
     Dates: start: 20030429, end: 20030514
  4. NORVASC [Concomitant]
  5. RAMIPRIL [Concomitant]
  6. OXAZEPAM [Concomitant]
  7. DIGITOXIN TAB [Concomitant]
  8. UNAT (TORASEMIDE) [Concomitant]
  9. LASIX [Concomitant]

REACTIONS (8)
  - BRAIN STEM INFARCTION [None]
  - EXANTHEM [None]
  - HEMIPARESIS [None]
  - LEFT VENTRICULAR FAILURE [None]
  - PLEURAL EFFUSION [None]
  - PULMONARY HYPERTENSION [None]
  - RENAL FAILURE [None]
  - RESPIRATORY FAILURE [None]
